FAERS Safety Report 8575969-4 (Version None)
Quarter: 2012Q3

REPORT INFORMATION
  Report Type: 
  Country: None (occurrence: None)
  Receive Date: 20120807
  Receipt Date: 20120801
  Transmission Date: 20120928
  Serious: Yes (Other)
  Sender: FDA-Public Use
  Company Number: DE-US-EMD SERONO, INC.-7152044

PATIENT
  Age: 34 Year
  Sex: Female

DRUGS (2)
  1. REBIF [Suspect]
     Indication: MULTIPLE SCLEROSIS
     Route: 058
     Dates: start: 20090101, end: 20120601
  2. REBIF [Suspect]
     Route: 058
     Dates: start: 20120601

REACTIONS (5)
  - INSOMNIA [None]
  - CHILLS [None]
  - INJECTION SITE INJURY [None]
  - TEMPERATURE INTOLERANCE [None]
  - LIVER INJURY [None]
